FAERS Safety Report 20950099 (Version 1)
Quarter: 2022Q2

REPORT INFORMATION
  Report Type: Spontaneous
  Country: CN (occurrence: CN)
  Receive Date: 20220613
  Receipt Date: 20220613
  Transmission Date: 20220721
  Serious: Yes (Death)
  Sender: FDA-Public Use
  Company Number: CN-STRIDES ARCOLAB LIMITED-2022SP006923

PATIENT
  Age: 73 Year
  Sex: Male

DRUGS (6)
  1. ETOPOSIDE [Suspect]
     Active Substance: ETOPOSIDE
     Indication: Neuroendocrine carcinoma of the skin
     Dosage: UNK
     Route: 065
     Dates: start: 2019, end: 201905
  2. IRINOTECAN [Suspect]
     Active Substance: IRINOTECAN
     Indication: Neuroendocrine carcinoma of the skin
     Dosage: UNK, CYCLICAL
     Route: 065
     Dates: start: 2019
  3. CISPLATIN [Suspect]
     Active Substance: CISPLATIN
     Indication: Neuroendocrine carcinoma of the skin
     Dosage: UNK
     Route: 065
     Dates: start: 2019, end: 201905
  4. CISPLATIN [Suspect]
     Active Substance: CISPLATIN
     Dosage: UNK, CYCLICAL
     Route: 065
     Dates: start: 2019
  5. SINTILIMAB [Suspect]
     Active Substance: SINTILIMAB
     Indication: Neuroendocrine carcinoma of the skin
     Dosage: 200 MILLIGRAM, EVERY 21 DAYS, CYCLICAL
     Route: 065
     Dates: start: 201909
  6. SINTILIMAB [Suspect]
     Active Substance: SINTILIMAB
     Dosage: UNK, CYCLICAL
     Route: 065
     Dates: start: 201910

REACTIONS (3)
  - Pneumonia bacterial [Fatal]
  - Pneumonia aspiration [Fatal]
  - Off label use [Unknown]

NARRATIVE: CASE EVENT DATE: 20190101
